FAERS Safety Report 10235646 (Version 1)
Quarter: 2014Q2

REPORT INFORMATION
  Report Type: Spontaneous
  Country: US (occurrence: US)
  Receive Date: 20140613
  Receipt Date: 20140613
  Transmission Date: 20141212
  Serious: Yes (Other)
  Sender: FDA-Public Use
  Company Number: CHPA2014US007970

PATIENT
  Age: 57 Year
  Sex: Female

DRUGS (2)
  1. EXCEDRIN SINUS HEADACHE [Suspect]
     Indication: HEADACHE
     Dosage: 2 DF AT A TIME 6 A DAY AS NEEDED
     Route: 048
  2. EXCEDRIN TENSION HEADACHE [Suspect]
     Route: 048

REACTIONS (3)
  - Depression [Unknown]
  - Drug dependence [Unknown]
  - Therapeutic response changed [Unknown]
